FAERS Safety Report 5484287-2 (Version None)
Quarter: 2007Q4

REPORT INFORMATION
  Report Type: 
  Country: None (occurrence: None)
  Receive Date: 20071012
  Receipt Date: 20071010
  Transmission Date: 20080405
  Serious: No
  Sender: FDA-Public Use
  Company Number: US-BOEHRINGER INGELHEIM PHARMACEUTICALS, INC.-2007-BP-19740BP

PATIENT
  Sex: Female

DRUGS (3)
  1. MIRAPEX [Suspect]
     Indication: PARKINSON'S DISEASE
     Route: 048
     Dates: end: 20070815
  2. SINEMET [Concomitant]
     Indication: PARKINSON'S DISEASE
  3. CARBIDOPA [Concomitant]

REACTIONS (3)
  - FOOD CRAVING [None]
  - HYPERPHAGIA [None]
  - WEIGHT INCREASED [None]
